FAERS Safety Report 8626056-8 (Version None)
Quarter: 2012Q3

REPORT INFORMATION
  Report Type: 
  Country: None (occurrence: None)
  Receive Date: 20120827
  Receipt Date: 20120820
  Transmission Date: 20120928
  Serious: Yes (Hospitalization)
  Sender: FDA-Public Use
  Company Number: US-CELGENEUS-163-21880-12062253

PATIENT
  Sex: Male

DRUGS (3)
  1. REVLIMID [Suspect]
     Indication: MULTIPLE MYELOMA
     Dosage: 25 MILLIGRAM
     Route: 048
     Dates: start: 20120517
  2. COUMADIN [Concomitant]
     Route: 065
  3. STOOL SOFTENER [Concomitant]
     Route: 065

REACTIONS (4)
  - ATELECTASIS [None]
  - SKIN EXFOLIATION [None]
  - DIARRHOEA [None]
  - CHEST DISCOMFORT [None]
